FAERS Safety Report 8352484-4 (Version None)
Quarter: 2012Q2

REPORT INFORMATION
  Report Type: 
  Country: None (occurrence: None)
  Receive Date: 20120511
  Receipt Date: 20120507
  Transmission Date: 20120825
  Serious: Yes (Hospitalization)
  Sender: FDA-Public Use
  Company Number: PHEH2012US009680

PATIENT
  Sex: Male

DRUGS (23)
  1. TASIGNA [Suspect]
  2. ACTOS [Concomitant]
     Dosage: 30 MG,  WITH DINNER
  3. COLCHICINE [Concomitant]
     Dosage: 0.6 MG, BID
  4. CYMBALTA [Concomitant]
     Dosage: 120 MG, QHS
  5. FLONASE [Concomitant]
     Dosage: 4 SPRAYS ONCE DAILY
  6. SLOW-MAG [Concomitant]
     Dosage: 64 MG, QD
  7. FOLIC ACID [Concomitant]
     Dosage: 1 MG, QD
  8. KLONOPIN [Concomitant]
     Dosage: 1 MG, QHS
  9. NIASPAN [Concomitant]
     Dosage: 1000 MG AT BED TIME
  10. LEVEMIR [Concomitant]
     Dosage: 80 U, QHS
  11. LYRICA [Concomitant]
     Dosage: 75 MG, QHS
  12. NORCO [Concomitant]
     Dosage: 10/325 ONE TO TWO Q 4 HOURS
  13. ACIDOPHILUS [Concomitant]
     Dosage: 3 DF, TID
     Route: 048
  14. COUMADIN [Concomitant]
     Dosage: 6 MG, QD
  15. ZALAPRAN [Concomitant]
     Dosage: 300 MG AT LUNCH
  16. OXYCONTIN [Concomitant]
     Dosage: 10 MG, Q 8 HOURS
  17. ATROPINE SULFATE [Concomitant]
     Dosage: 1 GTT, BID
  18. CLARITIN [Concomitant]
     Dosage: 10 MG,
  19. CELEBREX [Concomitant]
     Dosage: 200 MG, BID
  20. MEVACOR [Concomitant]
     Dosage: 40 MG WITH DINNER
  21. REQUIP [Concomitant]
     Dosage: 2 MG AT BED TIME
  22. NEXIUM [Concomitant]
     Dosage: 40 MG, BID
  23. LEVOTHYROXINE SODIUM [Concomitant]
     Dosage: 0.325 MG, QD

REACTIONS (2)
  - JOINT DISLOCATION [None]
  - PAIN [None]
